FAERS Safety Report 8132747-8 (Version None)
Quarter: 2012Q1

REPORT INFORMATION
  Report Type: 
  Country: None (occurrence: None)
  Receive Date: 20120208
  Receipt Date: 20120130
  Transmission Date: 20120608
  Serious: Yes (Hospitalization)
  Sender: FDA-Public Use
  Company Number: TCI2012A00376

PATIENT
  Age: 64 Year
  Sex: Female

DRUGS (6)
  1. ANGIOTENSIN II ANTAGONISTS [Concomitant]
  2. BIGUANIDES [Concomitant]
  3. SULFONAMIDES, UREA DERIVATIVES [Concomitant]
  4. CALCIUM CHANNEL BLOCKERS [Concomitant]
  5. ACTOS [Suspect]
     Indication: TYPE 2 DIABETES MELLITUS
     Dosage: 15 MG 915 MG, 1 D)
     Route: 048
     Dates: start: 20080724
  6. HMG COA REDUCTASE INHIBITORS [Concomitant]

REACTIONS (1)
  - ANGINA PECTORIS [None]
